FAERS Safety Report 5508427-1 (Version None)
Quarter: 2007Q4

REPORT INFORMATION
  Report Type: 
  Country: None (occurrence: None)
  Receive Date: 20071030
  Receipt Date: 20070927
  Transmission Date: 20080405
  Serious: No
  Sender: FDA-Public Use
  Company Number: 267956

PATIENT
  Age: 65 Year
  Sex: Female

DRUGS (3)
  1. LEVEMIR [Suspect]
     Indication: INSULIN-REQUIRING TYPE II DIABETES MELLITUS
     Dosage: 20 IU, BID, SUBCUTANEOUS
     Route: 058
     Dates: start: 20070921
  2. POTASSIUM (POTASSIUM) [Concomitant]
  3. LASIX [Concomitant]

REACTIONS (1)
  - HYPERSENSITIVITY [None]
